FAERS Safety Report 15530514 (Version 1)
Quarter: 2018Q4

REPORT INFORMATION
  Report Type: Spontaneous
  Country: FR (occurrence: FR)
  Receive Date: 20181018
  Receipt Date: 20181018
  Transmission Date: 20190205
  Serious: Yes (Hospitalization, Disabling, Other)
  Sender: FDA-Public Use
  Company Number: FR-009507513-1810FRA006907

PATIENT
  Age: 20 Year
  Sex: Female

DRUGS (1)
  1. NEXPLANON [Suspect]
     Active Substance: ETONOGESTREL
     Dosage: 1 DF, UNK
     Dates: start: 201705

REACTIONS (16)
  - Back pain [Unknown]
  - Polymenorrhoea [Unknown]
  - Device difficult to use [Recovered/Resolved]
  - Peripheral nerve injury [Not Recovered/Not Resolved]
  - Device deployment issue [Recovered/Resolved]
  - General anaesthesia [Unknown]
  - Adnexa uteri pain [Unknown]
  - Breast pain [Unknown]
  - Complication associated with device [Recovered/Resolved]
  - Neurological procedural complication [Not Recovered/Not Resolved]
  - Device breakage [Unknown]
  - Wrong technique in product usage process [Unknown]
  - Monoplegia [Not Recovered/Not Resolved]
  - Haematoma [Unknown]
  - Oedema [Unknown]
  - Complication of device removal [Recovered/Resolved]

NARRATIVE: CASE EVENT DATE: 201705
